FAERS Safety Report 13099458 (Version 1)
Quarter: 2017Q1

REPORT INFORMATION
  Report Type: Spontaneous
  Country: US (occurrence: US)
  Receive Date: 20170109
  Receipt Date: 20170109
  Transmission Date: 20170428
  Serious: Yes (Death)
  Sender: FDA-Public Use
  Company Number: US-INSYS THERAPEUTICS, INC-INS201612-000892

PATIENT
  Age: 44 Year
  Sex: Male

DRUGS (8)
  1. METHAMFETAMINE [Suspect]
     Active Substance: METHAMPHETAMINE
     Route: 065
  2. ALCOHOL. [Suspect]
     Active Substance: ALCOHOL
     Indication: DRUG ABUSE
     Route: 048
  3. FENTANYL. [Suspect]
     Active Substance: FENTANYL
     Route: 065
  4. METHAMFETAMINE [Suspect]
     Active Substance: METHAMPHETAMINE
     Indication: DRUG ABUSE
     Route: 048
  5. FENTANYL. [Suspect]
     Active Substance: FENTANYL
     Indication: DRUG ABUSE
     Route: 048
  6. ALCOHOL. [Suspect]
     Active Substance: ALCOHOL
     Route: 065
  7. HEROIN [Suspect]
     Active Substance: DIACETYLMORPHINE
     Indication: DRUG ABUSE
     Route: 048
  8. HEROIN [Suspect]
     Active Substance: DIACETYLMORPHINE
     Route: 065

REACTIONS (2)
  - Drug abuse [Fatal]
  - Toxicity to various agents [Fatal]
